FAERS Safety Report 4885633-0 (Version None)
Quarter: 2005Q4

REPORT INFORMATION
  Report Type: 
  Country: None (occurrence: None)
  Receive Date: 20051220
  Receipt Date: 20041101
  Transmission Date: 20060501
  Serious: Yes (Hospitalization)
  Sender: FDA-Public Use
  Company Number: HQWYE207903NOV04

PATIENT
  Age: 21 Year
  Sex: Female

DRUGS (8)
  1. EFFEXOR XR [Suspect]
     Indication: DEPRESSION
     Dosage: 225 MG 1X PER 1 DAY, ORAL
     Route: 048
     Dates: start: 20040101, end: 20040101
  2. EFFEXOR XR [Suspect]
     Indication: DEPRESSION
     Dosage: 225 MG 1X PER 1 DAY, ORAL
     Route: 048
     Dates: start: 20040101, end: 20041001
  3. EFFEXOR XR [Suspect]
     Indication: DEPRESSION
     Dosage: 225 MG 1X PER 1 DAY, ORAL
     Route: 048
     Dates: start: 20041001, end: 20041025
  4. EFFEXOR XR [Suspect]
     Indication: DEPRESSION
     Dosage: 225 MG 1X PER 1 DAY, ORAL
     Route: 048
     Dates: start: 20041027, end: 20041029
  5. WELLBUTRIN [Suspect]
     Indication: DEPRESSION
     Dosage: 300 MG 1X PER 1 DAY
     Dates: start: 20031101, end: 20040101
  6. WELLBUTRIN [Suspect]
     Indication: DEPRESSION
     Dosage: 300 MG 1X PER 1 DAY
     Dates: start: 20040101, end: 20041001
  7. WELLBUTRIN [Suspect]
     Indication: DEPRESSION
     Dosage: 300 MG 1X PER 1 DAY
     Dates: start: 20041001, end: 20041025
  8. WELLBUTRIN [Suspect]
     Indication: DEPRESSION
     Dosage: 300 MG 1X PER 1 DAY
     Dates: start: 20041028, end: 20041029

REACTIONS (5)
  - DIZZINESS [None]
  - DRUG WITHDRAWAL SYNDROME [None]
  - NAUSEA [None]
  - VERTIGO [None]
  - VOMITING [None]
